FAERS Safety Report 4694930-3 (Version None)
Quarter: 2005Q2

REPORT INFORMATION
  Report Type: 
  Country: None (occurrence: None)
  Receive Date: 20050620
  Receipt Date: 20050609
  Transmission Date: 20051028
  Serious: Yes (Other)
  Sender: FDA-Public Use
  Company Number: GXKR2005AT01228

PATIENT
  Age: 53 Year
  Sex: Female

DRUGS (2)
  1. LISINOPRIL AND HYDROCHLOROTHIAZIDE [Suspect]
     Indication: HYPERTENSION
     Dosage: 1/2 DF
     Route: 048
     Dates: start: 20041202, end: 20050425
  2. LEVOTHYROXINE SODIUM [Concomitant]

REACTIONS (5)
  - AGORAPHOBIA [None]
  - ANXIETY [None]
  - GASTROINTESTINAL INFECTION [None]
  - HYPERHIDROSIS [None]
  - PANIC ATTACK [None]
